FAERS Safety Report 16384064 (Version 2)
Quarter: 2019Q2

REPORT INFORMATION
  Report Type: Report from Study
  Country: JP (occurrence: JP)
  Receive Date: 20190603
  Receipt Date: 20190607
  Transmission Date: 20190711
  Serious: Yes (Hospitalization)
  Sender: FDA-Public Use
  Company Number: JP-ACTELION-A-CH2018-182867

PATIENT
  Age: 58 Year
  Sex: Female

DRUGS (9)
  1. PREDNISOLONE. [Concomitant]
     Active Substance: PREDNISOLONE
  2. ZOLPIDEM TARTRATE. [Concomitant]
     Active Substance: ZOLPIDEM TARTRATE
  3. ENDOXAN [Concomitant]
     Active Substance: CYCLOPHOSPHAMIDE
  4. OPSUMIT [Suspect]
     Active Substance: MACITENTAN
     Indication: PULMONARY ARTERIAL HYPERTENSION
     Dosage: 10 MG, QD
     Route: 048
     Dates: start: 20180825
  5. OPSUMIT [Suspect]
     Active Substance: MACITENTAN
     Dosage: 5 MG, QD
     Route: 048
     Dates: start: 20180824, end: 20180824
  6. ALFACALCIDOL [Concomitant]
     Active Substance: ALFACALCIDOL
  7. OXYGEN. [Concomitant]
     Active Substance: OXYGEN
  8. SAMTIREL [Suspect]
     Active Substance: ATOVAQUONE
     Indication: PNEUMONIA
     Dosage: 10 ML, QD
     Route: 048
     Dates: start: 20180919
  9. FERROUS CITRATE NA [Concomitant]
     Active Substance: SODIUM FERROUS CITRATE

REACTIONS (3)
  - Hypokalaemia [Recovered/Resolved]
  - Hepatic enzyme increased [Not Recovered/Not Resolved]
  - Gamma-glutamyltransferase increased [Not Recovered/Not Resolved]

NARRATIVE: CASE EVENT DATE: 20180831
